FAERS Safety Report 8003838-7 (Version None)
Quarter: 2011Q4

REPORT INFORMATION
  Report Type: 
  Country: None (occurrence: None)
  Receive Date: 20111222
  Receipt Date: 20111220
  Transmission Date: 20120403
  Serious: Yes (Death, Other)
  Sender: FDA-Public Use
  Company Number: DE-ELI_LILLY_AND_COMPANY-DE201111006282

PATIENT
  Sex: Female

DRUGS (2)
  1. EFFIENT [Suspect]
     Dosage: 10 MG, QD
     Route: 048
     Dates: start: 20110901
  2. EFFIENT [Suspect]
     Indication: THROMBOSIS PROPHYLAXIS
     Dosage: 60 MG, LOADING DOSE
     Route: 048
     Dates: start: 20110901, end: 20110901

REACTIONS (8)
  - THROMBOSIS IN DEVICE [None]
  - EYE HAEMORRHAGE [None]
  - EYE SWELLING [None]
  - CHEST DISCOMFORT [None]
  - EYE PRURITUS [None]
  - PRODUCT COUNTERFEIT [None]
  - DYSPNOEA [None]
  - CEREBRAL HAEMORRHAGE [None]
